FAERS Safety Report 8306619-X (Version None)
Quarter: 2012Q2

REPORT INFORMATION
  Report Type: 
  Country: None (occurrence: None)
  Receive Date: 20120424
  Receipt Date: 20120417
  Transmission Date: 20120825
  Serious: Yes (Death, Hospitalization)
  Sender: FDA-Public Use
  Company Number: US-BAYER-2012-004053

PATIENT
  Age: 41 Year
  Sex: Female

DRUGS (11)
  1. ABILIFY [Concomitant]
     Dosage: UNK MG, UNK
     Route: 048
  2. GEODON [Concomitant]
     Dosage: UNK MG, UNK
     Dates: start: 20110101
  3. YASMIN [Suspect]
     Route: 048
  4. KLONOPIN [Concomitant]
     Dosage: UNK MG, UNK
     Dates: start: 20110101
  5. LAMICTAL [Concomitant]
     Dosage: UNK
  6. TOPAMAX [Concomitant]
     Dosage: UNK
     Dates: start: 20091201
  7. NARCAN [Concomitant]
     Dosage: UNK
     Dates: start: 20110125
  8. DROSPIRENONE AND ETHINYL ESTRADIOL [Concomitant]
     Dosage: UNK
     Dates: start: 20101101
  9. NAMENDA [Concomitant]
     Dosage: UNK
     Dates: start: 20090701
  10. TOPAMAX [Concomitant]
     Indication: HEADACHE
     Dosage: 100 MG, QD
     Dates: start: 20070601, end: 20081001
  11. CYMBALTA [Concomitant]
     Dosage: UNK MG, UNK
     Dates: start: 20110101

REACTIONS (3)
  - CEREBRAL INFARCTION [None]
  - INJURY [None]
  - EMOTIONAL DISTRESS [None]
